FAERS Safety Report 7867704-X (Version None)
Quarter: 2011Q4

REPORT INFORMATION
  Report Type: 
  Country: None (occurrence: None)
  Receive Date: 20111026
  Receipt Date: 20111012
  Transmission Date: 20120403
  Serious: Yes (Other)
  Sender: FDA-Public Use
  Company Number: 2011P1009491

PATIENT
  Age: 65 Year
  Sex: Male

DRUGS (18)
  1. MIRTAZAPINE [Concomitant]
  2. ACETAMINOPHEN [Concomitant]
  3. ATORVASTATIN [Concomitant]
  4. ASPIRIN [Concomitant]
  5. PULMICORT [Concomitant]
  6. FENTANYL [Suspect]
     Indication: BREAKTHROUGH PAIN
     Dosage: 100 MCG;NAS, 400 MCG;NAS
     Route: 045
     Dates: start: 20110901
  7. FENTANYL [Suspect]
     Indication: CANCER PAIN
     Dosage: 100 MCG;NAS, 400 MCG;NAS
     Route: 045
     Dates: start: 20110901
  8. FENTANYL [Suspect]
     Indication: BREAKTHROUGH PAIN
     Dosage: 100 MCG;NAS, 400 MCG;NAS
     Route: 045
     Dates: start: 20110901
  9. FENTANYL [Suspect]
     Indication: CANCER PAIN
     Dosage: 100 MCG;NAS, 400 MCG;NAS
     Route: 045
     Dates: start: 20110901
  10. OMEPRAZOLE [Concomitant]
  11. RAMIPRIL [Concomitant]
  12. BISOPROLOL [Concomitant]
  13. TAMSULOSIN HCL [Concomitant]
  14. LORAZEPAM [Concomitant]
  15. LIDOCAINE [Concomitant]
  16. HYDROMORPHONE HCL [Concomitant]
  17. PHYSEPTONE [Concomitant]
  18. MONOMIL [Concomitant]

REACTIONS (2)
  - PAIN [None]
  - CONDITION AGGRAVATED [None]
